FAERS Safety Report 7623639-9 (Version None)
Quarter: 2011Q3

REPORT INFORMATION
  Report Type: 
  Country: None (occurrence: None)
  Receive Date: 20110720
  Receipt Date: 20110705
  Transmission Date: 20111222
  Serious: Yes (Other)
  Sender: FDA-Public Use
  Company Number: DE-SANOFI-AVENTIS-2011SA044391

PATIENT
  Age: 67 Year
  Sex: Male
  Weight: 70 kg

DRUGS (8)
  1. VERAPAMIL [Concomitant]
     Dates: end: 20110106
  2. ASPIRIN [Concomitant]
  3. TORSEMIDE [Concomitant]
  4. TORSEMIDE [Concomitant]
     Dates: start: 20110203
  5. PHENPROCOUMON [Concomitant]
  6. ENALAPRIL MALEATE [Concomitant]
  7. DRONEDARONE HCL [Suspect]
     Indication: ATRIAL FIBRILLATION
     Route: 048
     Dates: start: 20110105
  8. ENALAPRIL MALEATE [Concomitant]
     Dates: start: 20110115

REACTIONS (1)
  - CARDIAC FAILURE [None]
